FAERS Safety Report 7719806-6 (Version None)
Quarter: 2011Q3

REPORT INFORMATION
  Report Type: 
  Country: None (occurrence: None)
  Receive Date: 20110831
  Receipt Date: 20110819
  Transmission Date: 20111222
  Serious: No
  Sender: FDA-Public Use
  Company Number: US-BIOGENIDEC-2011BI014689

PATIENT
  Sex: Male

DRUGS (4)
  1. TYSABRI [Suspect]
     Indication: MULTIPLE SCLEROSIS
     Route: 042
     Dates: start: 20090406
  2. AVONEX [Concomitant]
     Indication: PRODUCT USED FOR UNKNOWN INDICATION
     Route: 030
  3. MOOD STABILIZER (NOS) [Concomitant]
     Indication: DEPRESSION
  4. AVONEX [Concomitant]
     Route: 030
     Dates: start: 20001104

REACTIONS (20)
  - UPPER RESPIRATORY TRACT CONGESTION [None]
  - BLOOD GLUCOSE DECREASED [None]
  - HEADACHE [None]
  - TREMOR [None]
  - NASAL CONGESTION [None]
  - BALANCE DISORDER [None]
  - PRESYNCOPE [None]
  - DYSPNOEA [None]
  - MENTAL IMPAIRMENT [None]
  - HEMIPARESIS [None]
  - WHITE BLOOD CELL COUNT ABNORMAL [None]
  - CHILLS [None]
  - MUSCULOSKELETAL STIFFNESS [None]
  - INSOMNIA [None]
  - DIZZINESS [None]
  - FATIGUE [None]
  - HYPOGLYCAEMIA [None]
  - HYPERTENSION [None]
  - CONFUSIONAL STATE [None]
  - DEPRESSION [None]
